FAERS Safety Report 21571529 (Version 1)
Quarter: 2022Q4

REPORT INFORMATION
  Report Type: Spontaneous
  Country: US (occurrence: None)
  Receive Date: 20221107
  Receipt Date: 20221107
  Transmission Date: 20230113
  Serious: No
  Sender: FDA-Public Use
  Company Number: None

PATIENT
  Age: 59 Year
  Sex: Female

DRUGS (1)
  1. SIROLIMUS [Suspect]
     Active Substance: SIROLIMUS
     Dosage: 2MG DAILY ORAL
     Route: 048
     Dates: start: 201906

REACTIONS (1)
  - Nephrectomy [None]

NARRATIVE: CASE EVENT DATE: 20221107
